FAERS Safety Report 16638084 (Version 1)
Quarter: 2019Q3

REPORT INFORMATION
  Report Type: Spontaneous
  Country: ES (occurrence: ES)
  Receive Date: 20190726
  Receipt Date: 20190726
  Transmission Date: 20191004
  Serious: Yes (Other)
  Sender: FDA-Public Use
  Company Number: PHHY2019ES171389

PATIENT
  Age: 68 Year
  Sex: Male

DRUGS (1)
  1. VORICONAZOLE. [Suspect]
     Active Substance: VORICONAZOLE
     Indication: RESPIRATORY TRACT INFECTION
     Dosage: 200 MG, BID (1-0-1)
     Route: 048
     Dates: start: 20190312, end: 20190412

REACTIONS (7)
  - Dyschromatopsia [Recovered/Resolved]
  - Malaise [Recovered/Resolved]
  - Face oedema [Recovered/Resolved]
  - Visual impairment [Recovered/Resolved]
  - Rash maculo-papular [Recovered/Resolved]
  - Dysgeusia [Recovered/Resolved]
  - Diarrhoea [Recovered/Resolved]

NARRATIVE: CASE EVENT DATE: 20190312
